FAERS Safety Report 5716218-1 (Version None)
Quarter: 2008Q2

REPORT INFORMATION
  Report Type: 
  Country: None (occurrence: None)
  Receive Date: 20080424
  Receipt Date: 20080415
  Transmission Date: 20081010
  Serious: Yes (Other)
  Sender: FDA-Public Use
  Company Number: US-JNJFOC-20080403877

PATIENT
  Age: 33 Year
  Sex: Male

DRUGS (3)
  1. ORTHOCLONE [Suspect]
     Indication: TRANSPLANT REJECTION
  2. CYCLOSPORINE [Suspect]
     Indication: TRANSPLANT REJECTION
  3. THYMOGLOBULIN [Suspect]
     Indication: TRANSPLANT REJECTION

REACTIONS (1)
  - COLD AGGLUTININS POSITIVE [None]
